FAERS Safety Report 8129797-4 (Version None)
Quarter: 2012Q1

REPORT INFORMATION
  Report Type: 
  Country: None (occurrence: None)
  Receive Date: 20120210
  Receipt Date: 20120210
  Transmission Date: 20120608
  Serious: Yes (Other)
  Sender: FDA-Public Use
  Company Number: None

PATIENT
  Age: 56 Year
  Sex: Female
  Weight: 72.121 kg

DRUGS (1)
  1. DEXILANT [Suspect]
     Indication: LARYNGEAL DISORDER
     Dosage: 1 CAPSULE BY MOUTH
     Route: 048
     Dates: start: 20120124, end: 20120201

REACTIONS (2)
  - OROPHARYNGEAL PAIN [None]
  - PALATAL DISORDER [None]
